FAERS Safety Report 17995382 (Version 1)
Quarter: 2020Q3

REPORT INFORMATION
  Report Type: Spontaneous
  Country: US (occurrence: US)
  Receive Date: 20200708
  Receipt Date: 20200708
  Transmission Date: 20201103
  Serious: Yes (Hospitalization)
  Sender: FDA-Public Use
  Company Number: None

PATIENT
  Age: 6 Year
  Sex: Female

DRUGS (12)
  1. FYCOMPA 0.5MG/ML [Concomitant]
  2. ACETAMINOPHEN 120MG [Concomitant]
  3. PREVACID [Concomitant]
     Active Substance: LANSOPRAZOLE
  4. EPIDIOLEX [Concomitant]
     Active Substance: CANNABIDIOL
  5. ALBUTEROL 0.083% NEBS [Concomitant]
  6. FLUTICASONE 50 MCG NS [Concomitant]
  7. DOXAZOSIN [Concomitant]
     Active Substance: DOXAZOSIN MESYLATE
  8. BETHKIS [Suspect]
     Active Substance: TOBRAMYCIN
     Indication: PSEUDOMONAS INFECTION
     Route: 055
  9. PULMOZYME [Concomitant]
     Active Substance: DORNASE ALFA
  10. MELATONIN 1MG/ML [Concomitant]
  11. CYPROHEPTADINE 2MG/5ML [Concomitant]
     Active Substance: CYPROHEPTADINE
  12. CLOBAZAM 2.5MG/ML [Concomitant]

REACTIONS (2)
  - Mastoiditis [None]
  - Escherichia infection [None]

NARRATIVE: CASE EVENT DATE: 20200702
